FAERS Safety Report 14169333 (Version 1)
Quarter: 2017Q4

REPORT INFORMATION
  Report Type: Spontaneous
  Country: US (occurrence: US)
  Receive Date: 20171107
  Receipt Date: 20171107
  Transmission Date: 20180321
  Serious: Yes (Other)
  Sender: FDA-Public Use
  Company Number: US-SHIRE-US201728137

PATIENT
  Age: 59 Year
  Sex: Female
  Weight: 90.7 kg

DRUGS (2)
  1. GAMMAGARD S/D [Suspect]
     Active Substance: HUMAN IMMUNOGLOBULIN G
     Indication: PRIMARY IMMUNODEFICIENCY SYNDROME
     Dosage: 30 G, 1X/2WKS
     Route: 042
     Dates: start: 201411
  2. GAMMAGARD S/D [Suspect]
     Active Substance: HUMAN IMMUNOGLOBULIN G
     Dosage: UNK

REACTIONS (3)
  - Urinary tract infection [Not Recovered/Not Resolved]
  - Gastroenteritis Escherichia coli [Not Recovered/Not Resolved]
  - Infectious mononucleosis [Recovering/Resolving]

NARRATIVE: CASE EVENT DATE: 201709
